FAERS Safety Report 5481104-1 (Version None)
Quarter: 2007Q4

REPORT INFORMATION
  Report Type: 
  Country: None (occurrence: None)
  Receive Date: 20071003
  Receipt Date: 20061117
  Transmission Date: 20080405
  Serious: Yes (Death)
  Sender: FDA-Public Use
  Company Number: 6027494

PATIENT
  Age: 47 Year

DRUGS (2)
  1. METFORMIN HCL [Suspect]
     Indication: DRUG USE FOR UNKNOWN INDICATION
     Route: 048
  2. AMLODIPINE [Suspect]
     Route: 048

REACTIONS (1)
  - MULTIPLE DRUG OVERDOSE INTENTIONAL [None]
